FAERS Safety Report 11630076 (Version 1)
Quarter: 2015Q4

REPORT INFORMATION
  Report Type: Spontaneous
  Country: US (occurrence: US)
  Receive Date: 20151014
  Receipt Date: 20151014
  Transmission Date: 20160304
  Serious: No
  Sender: FDA-Public Use
  Company Number: US-INDIVIOR-RB-080462-2015

PATIENT
  Age: 58 Year
  Sex: Male

DRUGS (1)
  1. SUBOXONE [Suspect]
     Active Substance: BUPRENORPHINE HYDROCHLORIDE\NALOXONE HYDROCHLORIDE
     Indication: DRUG DEPENDENCE
     Dosage: TINY PIECES DAILY FOR FOUR DAYS
     Route: 060
     Dates: start: 20150612, end: 20150615

REACTIONS (5)
  - Euphoric mood [Recovered/Resolved]
  - Product preparation error [Recovered/Resolved]
  - Substance abuse [Recovered/Resolved]
  - Scratch [Recovered/Resolved]
  - Pruritus [Recovered/Resolved]

NARRATIVE: CASE EVENT DATE: 20150612
